FAERS Safety Report 25770985 (Version 3)
Quarter: 2025Q4

REPORT INFORMATION
  Report Type: Report from Study
  Country: US (occurrence: US)
  Receive Date: 20250908
  Receipt Date: 20251107
  Transmission Date: 20260118
  Serious: Yes (Hospitalization, Other)
  Sender: IPSEN BIOPHARMACEUTICALS, INC.
  Company Number: US-IPSEN Group, Research and Development-2023-20070

PATIENT
  Age: 77 Year
  Sex: Male
  Weight: 101.7 kg

DRUGS (20)
  1. TAZVERIK [Suspect]
     Active Substance: TAZEMETOSTAT HYDROBROMIDE
     Indication: Soft tissue sarcoma
     Dosage: 1600MG DAILY (800 MG, TWICE A DAY)
     Route: 048
     Dates: start: 20230606, end: 20251001
  2. TAZVERIK [Suspect]
     Active Substance: TAZEMETOSTAT HYDROBROMIDE
     Indication: Follicular lymphoma
  3. TAZVERIK [Suspect]
     Active Substance: TAZEMETOSTAT HYDROBROMIDE
     Indication: Epithelioid sarcoma
  4. ASPIRIN [Concomitant]
     Active Substance: ASPIRIN
  5. ATORVASTATIN [Concomitant]
     Active Substance: ATORVASTATIN
  6. CALCIUM [Concomitant]
     Active Substance: CALCIUM
  7. CRANBERRY [Concomitant]
     Active Substance: CRANBERRY
  8. FLUTICASONE PROPIONATE [Concomitant]
     Active Substance: FLUTICASONE PROPIONATE
  9. GLUCOSAMINE SULFATE [Concomitant]
     Active Substance: GLUCOSAMINE SULFATE
  10. LOSARTAN POTASSIUM [Concomitant]
     Active Substance: LOSARTAN POTASSIUM
  11. MECLIZINE [Concomitant]
     Active Substance: MECLIZINE HYDROCHLORIDE
  12. METOPROLOL SUCCINATE [Concomitant]
     Active Substance: METOPROLOL SUCCINATE
  13. MONTELUKAST SODIUM [Concomitant]
     Active Substance: MONTELUKAST SODIUM
  14. NAPROXEN [Concomitant]
     Active Substance: NAPROXEN
  15. VITAMIN D [Concomitant]
     Active Substance: VITAMIN D NOS
  16. VITAMIN B COMPLEX NOS [Concomitant]
     Active Substance: CYANOCOBALAMIN\PYRIDOXINE HYDROCHLORIDE\RIBOFLAVIN\SODIUM PANTOTHENATE\THIAMINE HYDROCHLORIDE\VITAMI
  17. AMOXICILLIN [Concomitant]
     Active Substance: AMOXICILLIN
  18. DEXAMETHASONE [Concomitant]
     Active Substance: DEXAMETHASONE
  19. GABAPENTIN [Concomitant]
     Active Substance: GABAPENTIN
  20. IRON [Concomitant]
     Active Substance: IRON

REACTIONS (16)
  - Infection [Recovering/Resolving]
  - Groin abscess [Not Recovered/Not Resolved]
  - Groin pain [Unknown]
  - Fatigue [Not Recovered/Not Resolved]
  - Disease progression [Not Recovered/Not Resolved]
  - Pulmonary mass [Not Recovered/Not Resolved]
  - Oedema peripheral [Unknown]
  - Pain [Unknown]
  - Alopecia [Recovering/Resolving]
  - Weight decreased [Unknown]
  - Dyspnoea [Unknown]
  - Decreased appetite [Recovering/Resolving]
  - Hyperhidrosis [Recovering/Resolving]
  - Chills [Recovering/Resolving]
  - Fatigue [Recovering/Resolving]
  - Groin infection [Not Recovered/Not Resolved]

NARRATIVE: CASE EVENT DATE: 20230819
